FAERS Safety Report 5016387-5 (Version None)
Quarter: 2006Q2

REPORT INFORMATION
  Report Type: 
  Country: None (occurrence: None)
  Receive Date: 20060526
  Receipt Date: 20060509
  Transmission Date: 20061013
  Serious: Yes (Disabling)
  Sender: FDA-Public Use
  Company Number: DK200604001683

PATIENT
  Age: 61 Year
  Sex: Female
  Weight: 60 kg

DRUGS (2)
  1. RALOXIFENE HCL [Suspect]
     Indication: OSTEOPOROSIS
     Dosage: 60 MG, DAILY (1/D), ORAL
     Route: 048
     Dates: start: 20040401, end: 20040617
  2. HUERTEMAGNYL (ACETYLSALICYLIC ACID, MAGNESIUM OXIDE HEAVY) [Concomitant]

REACTIONS (3)
  - BLINDNESS UNILATERAL [None]
  - RETINAL OEDEMA [None]
  - VISUAL ACUITY REDUCED [None]
